FAERS Safety Report 25889736 (Version 1)
Quarter: 2025Q4

REPORT INFORMATION
  Report Type: Spontaneous
  Country: US (occurrence: US)
  Receive Date: 20251007
  Receipt Date: 20251007
  Transmission Date: 20260118
  Serious: Yes (Other)
  Sender: HIKMA
  Company Number: US-HIKMA PHARMACEUTICALS USA INC.-US-H14001-25-10887

PATIENT

DRUGS (10)
  1. ABRAXANE [Suspect]
     Active Substance: PACLITAXEL
     Indication: Adenocarcinoma pancreas
     Dosage: UNKNOWN. 2 ROUNDS
     Route: 065
     Dates: start: 202505
  2. FLUOROURACIL [Suspect]
     Active Substance: FLUOROURACIL
     Dosage: UNKNOWN, 3 ROUNDS
     Route: 065
     Dates: end: 20250717
  3. FLUOROURACIL [Suspect]
     Active Substance: FLUOROURACIL
     Indication: Adenocarcinoma pancreas
     Dosage: UNKNOWN, 8 ROUNDS
     Route: 065
     Dates: start: 202404
  4. GEMCITABINE [Suspect]
     Active Substance: GEMCITABINE
     Indication: Adenocarcinoma pancreas
     Dosage: UNKNOWN. 2 ROUNDS
     Route: 065
     Dates: start: 202505
  5. IRINOTECAN [Suspect]
     Active Substance: IRINOTECAN
     Dosage: UNKNOWN, 3 ROUNDS
     Route: 065
     Dates: end: 20250717
  6. IRINOTECAN [Suspect]
     Active Substance: IRINOTECAN
     Indication: Adenocarcinoma pancreas
     Dosage: UNKNOWN, 8 ROUNDS
     Route: 065
     Dates: start: 202404
  7. LEUCOVORIN [Suspect]
     Active Substance: LEUCOVORIN\LEUCOVORIN CALCIUM
     Indication: Adenocarcinoma pancreas
     Dosage: UNKNOWN, 8 ROUNDS
     Route: 065
     Dates: start: 202404
  8. LEUCOVORIN [Suspect]
     Active Substance: LEUCOVORIN\LEUCOVORIN CALCIUM
     Dosage: UNKNOWN. 3 ROUNDS
     Route: 065
     Dates: end: 20250717
  9. OXALIPLATIN [Suspect]
     Active Substance: OXALIPLATIN
     Dosage: UNKNOWN, 3 ROUNDS
     Route: 065
     Dates: end: 20250717
  10. OXALIPLATIN [Suspect]
     Active Substance: OXALIPLATIN
     Indication: Adenocarcinoma pancreas
     Dosage: UNKNOWN, 8 ROUNDS
     Route: 065
     Dates: start: 202404

REACTIONS (2)
  - Disease progression [Unknown]
  - Hepatic lesion [Unknown]
